FAERS Safety Report 16424179 (Version 2)
Quarter: 2019Q2

REPORT INFORMATION
  Report Type: Spontaneous
  Country: US (occurrence: US)
  Receive Date: 20190613
  Receipt Date: 20190627
  Transmission Date: 20190711
  Serious: Yes (Other)
  Sender: FDA-Public Use
  Company Number: US-DRREDDYS-USA/USA/19/0111041

PATIENT
  Age: 68 Year
  Sex: Male

DRUGS (5)
  1. SIROLIMUS. [Suspect]
     Active Substance: SIROLIMUS
     Indication: GRAFT VERSUS HOST DISEASE
  2. PANOBINOSTAT [Suspect]
     Active Substance: PANOBINOSTAT
     Indication: GRAFT VERSUS HOST DISEASE
  3. FLUDARABINE [Suspect]
     Active Substance: FLUDARABINE PHOSPHATE
     Indication: ACUTE MYELOID LEUKAEMIA
  4. MELPHALAN HYDROCHLORIDE FOR INJECTION [Suspect]
     Active Substance: MELPHALAN HYDROCHLORIDE
     Indication: ACUTE MYELOID LEUKAEMIA
  5. TACROLIMUS. [Suspect]
     Active Substance: TACROLIMUS
     Indication: GRAFT VERSUS HOST DISEASE

REACTIONS (12)
  - Abdominal pain [Recovering/Resolving]
  - Pneumatosis intestinalis [Recovering/Resolving]
  - Lung consolidation [Recovering/Resolving]
  - Atrial fibrillation [Recovering/Resolving]
  - Hypotension [Recovering/Resolving]
  - Pneumomediastinum [Recovering/Resolving]
  - Dizziness [Recovering/Resolving]
  - Candida infection [Recovering/Resolving]
  - Dyspnoea [Recovering/Resolving]
  - Pneumoperitoneum [Recovering/Resolving]
  - Productive cough [Recovering/Resolving]
  - Diarrhoea [Recovering/Resolving]
